FAERS Safety Report 5560228-4 (Version None)
Quarter: 2007Q4

REPORT INFORMATION
  Report Type: 
  Country: None (occurrence: None)
  Receive Date: 20071214
  Receipt Date: 20071029
  Transmission Date: 20080405
  Serious: No
  Sender: FDA-Public Use
  Company Number: US-ABBOTT-07P-163-0423095-00

PATIENT
  Sex: Female
  Weight: 41.768 kg

DRUGS (5)
  1. HUMIRA [Suspect]
     Indication: CROHN'S DISEASE
     Route: 058
     Dates: start: 20071016
  2. COLESTYRAMINE [Concomitant]
     Indication: DIARRHOEA
     Route: 048
  3. HYOSCYAMINE SULFATE [Concomitant]
     Indication: DRUG USE FOR UNKNOWN INDICATION
     Route: 048
  4. LOMOTIL [Concomitant]
     Indication: DRUG USE FOR UNKNOWN INDICATION
     Route: 048
  5. RANITIDINE HYDROCHLORIDE [Concomitant]
     Indication: OESOPHAGEAL SPASM
     Route: 048

REACTIONS (1)
  - BLOOD PRESSURE INCREASED [None]
